FAERS Safety Report 7724427-5 (Version None)
Quarter: 2011Q3

REPORT INFORMATION
  Report Type: 
  Country: None (occurrence: None)
  Receive Date: 20110901
  Receipt Date: 20110823
  Transmission Date: 20111222
  Serious: Yes (Hospitalization)
  Sender: FDA-Public Use
  Company Number: US-BAYER-201033801NA

PATIENT
  Age: 40 Year
  Sex: Female
  Weight: 75 kg

DRUGS (13)
  1. YAZ [Suspect]
     Indication: CONTRACEPTION
     Route: 048
     Dates: start: 20040601
  2. DROSPIRENONE AND ETHINYL ESTRADIOL [Suspect]
     Indication: CONTRACEPTION
     Route: 048
     Dates: start: 20040601
  3. FLONASE [Concomitant]
  4. NASACORT [Concomitant]
  5. SIMVASTATIN [Concomitant]
     Dosage: 10 MG, QD
     Route: 048
  6. YASMIN [Suspect]
     Indication: CONTRACEPTION
     Route: 048
     Dates: start: 20040601
  7. ALBUTEROL SULFATE AUTOHALER [Concomitant]
  8. INATAL [Concomitant]
     Dosage: 0.8 MG, QID
  9. RESPIRATORY SYSTEM [Concomitant]
  10. CLARITIN [Concomitant]
     Dosage: 10 MG, QD
     Route: 048
  11. SINGULAIR [Concomitant]
     Dosage: 10 MG, QD
     Route: 048
  12. ADVAIR DISKUS 100/50 [Concomitant]
     Dosage: UNK UNK, BID
  13. METFORMIN [Concomitant]
     Dosage: 500 MG, QD

REACTIONS (2)
  - DEEP VEIN THROMBOSIS [None]
  - PAIN [None]
